FAERS Safety Report 16043825 (Version 1)
Quarter: 2019Q1

REPORT INFORMATION
  Report Type: Spontaneous
  Country: US (occurrence: US)
  Receive Date: 20190306
  Receipt Date: 20190306
  Transmission Date: 20190418
  Serious: No
  Sender: FDA-Public Use
  Company Number: US-SA-2019SA051681

PATIENT
  Age: 64 Year
  Sex: Female

DRUGS (1)
  1. LANTUS SOLOSTAR [Suspect]
     Active Substance: INSULIN GLARGINE
     Dosage: 2 U, BID
     Route: 065

REACTIONS (5)
  - Inappropriate schedule of product administration [Unknown]
  - Device issue [Unknown]
  - Product odour abnormal [Unknown]
  - Multiple use of single-use product [Unknown]
  - Product dose omission [Unknown]
